FAERS Safety Report 10654106 (Version 4)
Quarter: 2015Q1

REPORT INFORMATION
  Report Type: Spontaneous
  Country: US (occurrence: US)
  Receive Date: 20141216
  Receipt Date: 20150206
  Transmission Date: 20150720
  Serious: Yes (Hospitalization, Other)
  Sender: FDA-Public Use
  Company Number: US-UNITED THERAPEUTICS-UNT-2014-011241

PATIENT
  Age: 72 Year
  Sex: Female
  Weight: 61.22 kg

DRUGS (4)
  1. REMODULIN [Suspect]
     Active Substance: TREPROSTINIL
     Dosage: 0.035 ?G/KG, CONTINUING
     Route: 041
  2. POTASSIUM [Suspect]
     Active Substance: POTASSIUM
     Indication: PRODUCT USED FOR UNKNOWN INDICATION
     Dosage: UNKNOWN
     Route: 065
  3. REMODULIN [Suspect]
     Active Substance: TREPROSTINIL
     Indication: PULMONARY HYPERTENSION
     Dosage: 0.036 ?G/KG, CONTINUING
     Route: 041
     Dates: start: 20141112
  4. FLOLAN [Suspect]
     Active Substance: EPOPROSTENOL SODIUM
     Indication: COR PULMONALE CHRONIC
     Dosage: 0.021 ?G/KG, UNK
     Route: 042
     Dates: start: 20070327

REACTIONS (11)
  - Blood potassium decreased [Unknown]
  - Fluid retention [Unknown]
  - Weight increased [Unknown]
  - Diarrhoea [Unknown]
  - Oedema peripheral [Unknown]
  - Blood urine present [Unknown]
  - Fall [Unknown]
  - Abdominal discomfort [Unknown]
  - Nervousness [Unknown]
  - Device issue [Unknown]
  - Dermatitis contact [Unknown]

NARRATIVE: CASE EVENT DATE: 201411
